FAERS Safety Report 23942973 (Version 1)
Quarter: 2024Q2

REPORT INFORMATION
  Report Type: Spontaneous
  Country: US (occurrence: US)
  Receive Date: 20240605
  Receipt Date: 20240605
  Transmission Date: 20240716
  Serious: No
  Sender: FDA-Public Use
  Company Number: US-BIOGEN-2024BI01267871

PATIENT
  Sex: Female

DRUGS (10)
  1. TECFIDERA [Suspect]
     Active Substance: DIMETHYL FUMARATE
     Indication: Multiple sclerosis
     Route: 050
  2. CRESTOR [Concomitant]
     Active Substance: ROSUVASTATIN CALCIUM
     Route: 050
  3. OMEGA 3 [Concomitant]
     Active Substance: CAPSAICIN
     Route: 050
  4. VITAMIN D3 [Concomitant]
     Active Substance: CHOLECALCIFEROL
     Dosage: 2,000 UNIT (OHIO)
     Route: 050
  5. CALCIUM GLUCONATE [Concomitant]
     Active Substance: CALCIUM GLUCONATE
     Route: 050
  6. PEPCID AC MAXIMUM STRENGTH [Concomitant]
     Active Substance: FAMOTIDINE
     Route: 050
  7. VITAMIN C [Concomitant]
     Active Substance: ASCORBIC ACID
     Route: 050
  8. GABAPENTIN [Concomitant]
     Active Substance: GABAPENTIN
     Route: 050
  9. GLUCOSAMINE [Concomitant]
     Active Substance: GLUCOSAMINE
     Dosage: GLUCOSAMINE 1500 COMPLEX
     Route: 050
  10. ZYRTEC [Concomitant]
     Active Substance: CETIRIZINE HYDROCHLORIDE
     Route: 050

REACTIONS (1)
  - Abdominal discomfort [Unknown]
